FAERS Safety Report 20214178 (Version 1)
Quarter: 2021Q4

REPORT INFORMATION
  Report Type: Spontaneous
  Country: US (occurrence: None)
  Receive Date: 20211221
  Receipt Date: 20211221
  Transmission Date: 20220304
  Serious: Yes (Life-Threatening, Hospitalization, Disabling)
  Sender: FDA-Public Use
  Company Number: None

PATIENT
  Age: 33 Year
  Sex: Female
  Weight: 50.85 kg

DRUGS (1)
  1. GADAVIST [Suspect]
     Active Substance: GADOBUTROL

REACTIONS (12)
  - Wrong product administered [None]
  - Anxiety [None]
  - Burning sensation [None]
  - Rash [None]
  - Dyspnoea [None]
  - Insomnia [None]
  - Myalgia [None]
  - Arthralgia [None]
  - Gait disturbance [None]
  - Feeling abnormal [None]
  - Paraesthesia [None]
  - Contrast media deposition [None]

NARRATIVE: CASE EVENT DATE: 20190503
